FAERS Safety Report 7860389-8 (Version None)
Quarter: 2011Q4

REPORT INFORMATION
  Report Type: 
  Country: None (occurrence: None)
  Receive Date: 20111027
  Receipt Date: 20111019
  Transmission Date: 20120403
  Serious: Yes (Hospitalization)
  Sender: FDA-Public Use
  Company Number: PHEH2011US06899

PATIENT
  Age: 18 Year
  Sex: Female

DRUGS (1)
  1. TOBI [Suspect]
     Dosage: 300 MG, BID  VIA INHALATION WITH 28 DAYS ON 28 DAYS OFF
     Dates: start: 20110407, end: 20110601

REACTIONS (1)
  - UPPER RESPIRATORY TRACT INFECTION [None]
